FAERS Safety Report 16741870 (Version 2)
Quarter: 2019Q4

REPORT INFORMATION
  Report Type: Spontaneous
  Country: JP (occurrence: JP)
  Receive Date: 20190826
  Receipt Date: 20191001
  Transmission Date: 20200122
  Serious: Yes (Other)
  Sender: FDA-Public Use
  Company Number: PHHY2019JP161054

PATIENT
  Sex: Female

DRUGS (8)
  1. AZATHIOPRINE. [Suspect]
     Active Substance: AZATHIOPRINE
     Indication: FOETAL EXPOSURE DURING PREGNANCY
     Dosage: UNK UKN, UNK
     Route: 064
  2. ALTAT [Suspect]
     Active Substance: ROXATIDINE ACETATE HYDROCHLORIDE
     Indication: FOETAL EXPOSURE DURING PREGNANCY
     Dosage: UNK UKN, UNK
     Route: 064
     Dates: start: 20110119
  3. MEDROL [Suspect]
     Active Substance: METHYLPREDNISOLONE
     Indication: FOETAL EXPOSURE DURING PREGNANCY
     Dosage: UNK UKN, UNK
     Route: 064
     Dates: start: 20110325
  4. WYPAX [Suspect]
     Active Substance: LORAZEPAM
     Indication: FOETAL EXPOSURE DURING PREGNANCY
     Dosage: UNK UKN, UNK
     Route: 064
  5. NEORAL [Suspect]
     Active Substance: CYCLOSPORINE
     Indication: FOETAL EXPOSURE DURING PREGNANCY
     Dosage: UNK UKN, UNK
     Route: 064
  6. NEORAL [Suspect]
     Active Substance: CYCLOSPORINE
     Dosage: MATERNAL DOSE:75 MG, BID
     Route: 064
     Dates: start: 20110321
  7. RITUXIMAB. [Suspect]
     Active Substance: RITUXIMAB
     Indication: FOETAL EXPOSURE DURING PREGNANCY
     Dosage: UNK UKN, UNK
     Route: 064
  8. IMURAN [Suspect]
     Active Substance: AZATHIOPRINE
     Indication: FOETAL EXPOSURE DURING PREGNANCY
     Dosage: UNK UKN, UNK
     Route: 064
     Dates: start: 20130501, end: 20141007

REACTIONS (2)
  - Low birth weight baby [Unknown]
  - Foetal exposure during pregnancy [Unknown]
